FAERS Safety Report 13611729 (Version 2)
Quarter: 2017Q2

REPORT INFORMATION
  Report Type: Report from Study
  Country: JP (occurrence: JP)
  Receive Date: 20170605
  Receipt Date: 20170629
  Transmission Date: 20170830
  Serious: Yes (Hospitalization)
  Sender: FDA-Public Use
  Company Number: JP-B.I. PHARMACEUTICALS,INC./RIDGEFIELD-2017-NB-002768

PATIENT
  Age: 67 Year
  Sex: Female
  Weight: 56.7 kg

DRUGS (7)
  1. TRAMCET [Suspect]
     Active Substance: ACETAMINOPHEN\TRAMADOL
     Indication: PRODUCT USED FOR UNKNOWN INDICATION
     Route: 048
     Dates: start: 20161008, end: 20161009
  2. METGLUCO [Concomitant]
     Active Substance: METFORMIN HYDROCHLORIDE
     Indication: TYPE 2 DIABETES MELLITUS
     Route: 048
     Dates: end: 20160416
  3. EMPAGLIFLOZIN [Suspect]
     Active Substance: EMPAGLIFLOZIN
     Indication: TYPE 2 DIABETES MELLITUS
     Route: 048
     Dates: start: 20160416, end: 20161203
  4. METGLUCO [Concomitant]
     Active Substance: METFORMIN HYDROCHLORIDE
     Route: 048
     Dates: start: 20161128
  5. VOGLIBOSE [Concomitant]
     Active Substance: VOGLIBOSE
     Indication: TYPE 2 DIABETES MELLITUS
     Route: 048
     Dates: end: 20160416
  6. VOGLIBOSE [Concomitant]
     Active Substance: VOGLIBOSE
     Route: 048
     Dates: start: 20161128
  7. ONGLYZA [Concomitant]
     Active Substance: SAXAGLIPTIN HYDROCHLORIDE
     Indication: TYPE 2 DIABETES MELLITUS
     Route: 048

REACTIONS (8)
  - Neuralgia [Recovered/Resolved]
  - Vomiting [Recovered/Resolved]
  - Arthralgia [Recovered/Resolved]
  - Osteoarthritis [Recovered/Resolved]
  - Rhinitis allergic [Not Recovered/Not Resolved]
  - Asthma [Recovered/Resolved]
  - Bronchitis [Recovered/Resolved]
  - Chronic gastritis [Not Recovered/Not Resolved]

NARRATIVE: CASE EVENT DATE: 201606
